FAERS Safety Report 8530442-4 (Version None)
Quarter: 2012Q3

REPORT INFORMATION
  Report Type: 
  Country: None (occurrence: None)
  Receive Date: 20120723
  Receipt Date: 20120712
  Transmission Date: 20120928
  Serious: Yes (Hospitalization)
  Sender: FDA-Public Use
  Company Number: DE-SANOFI-AVENTIS-2012SA049751

PATIENT
  Age: 55 Year
  Sex: Male
  Weight: 63.5 kg

DRUGS (6)
  1. DOCETAXEL [Suspect]
     Route: 041
     Dates: start: 20120704, end: 20120704
  2. CISPLATIN [Suspect]
     Route: 041
     Dates: start: 20120704, end: 20120704
  3. FLUOROURACIL [Suspect]
     Route: 041
     Dates: start: 20120704, end: 20120704
  4. METOCLOPRAMIDE [Concomitant]
     Indication: NAUSEA
     Route: 048
  5. CIPROFLOXACIN [Concomitant]
  6. GRANISETRON [Concomitant]

REACTIONS (3)
  - LEUKOPENIA [None]
  - NEUTROPENIA [None]
  - BLOOD SODIUM DECREASED [None]
